FAERS Safety Report 13641448 (Version 1)
Quarter: 2017Q2

REPORT INFORMATION
  Report Type: Spontaneous
  Country: US (occurrence: US)
  Receive Date: 20170610
  Receipt Date: 20170610
  Transmission Date: 20170830
  Serious: Yes (Disabling)
  Sender: FDA-Public Use
  Company Number: None

PATIENT
  Age: 18 Year
  Sex: Male
  Weight: 54.9 kg

DRUGS (5)
  1. FINASTERIDE. [Suspect]
     Active Substance: FINASTERIDE
     Indication: GENDER DYSPHORIA
     Dosage: ?          QUANTITY:1 TABLET(S);?
     Route: 048
     Dates: start: 20150301, end: 20150331
  2. ESTRADIOL. [Concomitant]
     Active Substance: ESTRADIOL
  3. SPIRONOLACTONE. [Concomitant]
     Active Substance: SPIRONOLACTONE
  4. NATURE MADE SUPER STRENGTH CRANBERRY [Concomitant]
  5. NATURE^S WAY ALIVE! WOMEN^S ENERGY [Concomitant]

REACTIONS (13)
  - Tinnitus [None]
  - Cognitive disorder [None]
  - Joint crepitation [None]
  - Paraesthesia [None]
  - Anhedonia [None]
  - Migraine [None]
  - Lactose intolerance [None]
  - Back pain [None]
  - Insomnia [None]
  - Muscle twitching [None]
  - Fatigue [None]
  - Depression [None]
  - Memory impairment [None]

NARRATIVE: CASE EVENT DATE: 20150329
